FAERS Safety Report 23703868 (Version 1)
Quarter: 2024Q2

REPORT INFORMATION
  Report Type: Spontaneous
  Country: US (occurrence: US)
  Receive Date: 20240403
  Receipt Date: 20240403
  Transmission Date: 20240716
  Serious: Yes (Other)
  Sender: FDA-Public Use
  Company Number: US-MARINUS PHARMACEUTICALS, INC.-MAR2024000058

PATIENT

DRUGS (6)
  1. ZTALMY [Suspect]
     Active Substance: GANAXOLONE
     Indication: Status epilepticus
     Dosage: UNK
     Route: 065
     Dates: start: 20230912
  2. ZULRESSO [Concomitant]
     Active Substance: BREXANOLONE
     Indication: Epilepsy
     Dosage: UNK
     Route: 042
     Dates: start: 20230901, end: 20230906
  3. ZULRESSO [Concomitant]
     Active Substance: BREXANOLONE
     Dosage: 300 MCG/KG/HR
     Route: 042
  4. ZULRESSO [Concomitant]
     Active Substance: BREXANOLONE
     Dosage: UNK, BAG 7 EXCEEDED 12 HOURS HANG TIME BY APPROXIMATELY 3.5 HOURS
     Route: 042
     Dates: start: 20230904
  5. ZULRESSO [Concomitant]
     Active Substance: BREXANOLONE
     Dosage: UNK, BAG 8
     Route: 042
     Dates: start: 20230905
  6. ZULRESSO [Concomitant]
     Active Substance: BREXANOLONE
     Dosage: UNK, INTRAVENOUS USE
     Route: 042
     Dates: end: 20230906

REACTIONS (2)
  - Change in seizure presentation [Unknown]
  - Electroencephalogram abnormal [Unknown]

NARRATIVE: CASE EVENT DATE: 20230912
